FAERS Safety Report 9127945 (Version 2)
Quarter: 2013Q2

REPORT INFORMATION
  Report Type: Spontaneous
  Country: US (occurrence: US)
  Receive Date: 20130228
  Receipt Date: 20130528
  Transmission Date: 20140414
  Serious: No
  Sender: FDA-Public Use
  Company Number: US-BRISTOL-MYERS SQUIBB COMPANY-17164484

PATIENT
  Age: 78 Year
  Sex: Female

DRUGS (1)
  1. KOMBIGLYZE XR [Suspect]
     Indication: TYPE 2 DIABETES MELLITUS
     Dosage: 1DF:2.5/1000MG TABS # 60
     Route: 048
     Dates: start: 20121106, end: 20121126

REACTIONS (1)
  - Pruritus [Recovered/Resolved]
